FAERS Safety Report 6859361-6 (Version None)
Quarter: 2010Q3

REPORT INFORMATION
  Report Type: 
  Country: None (occurrence: None)
  Receive Date: 20100719
  Receipt Date: 20080621
  Transmission Date: 20110219
  Serious: Yes (Other)
  Sender: FDA-Public Use
  Company Number: US-PFIZER INC-2008019043

PATIENT
  Sex: Female
  Weight: 63.5 kg

DRUGS (5)
  1. CHANTIX [Suspect]
     Indication: SMOKING CESSATION THERAPY
     Route: 048
     Dates: start: 20080213
  2. PROGESTERONE [Concomitant]
  3. ESTROGENS [Concomitant]
  4. SYNTHROID [Concomitant]
     Indication: THYROID DISORDER
  5. FLECAINIDE ACETATE [Concomitant]

REACTIONS (4)
  - DRUG ADMINISTRATION ERROR [None]
  - FEELING ABNORMAL [None]
  - PSYCHOMOTOR HYPERACTIVITY [None]
  - SLEEP DISORDER [None]
